FAERS Safety Report 9959229 (Version 1)
Quarter: 2014Q1

REPORT INFORMATION
  Report Type: Report from Study
  Country: US (occurrence: US)
  Receive Date: 20140305
  Receipt Date: 20140305
  Transmission Date: 20141002
  Serious: No
  Sender: FDA-Public Use
  Company Number: US-ABBVIE-13P-163-1104010-00

PATIENT
  Age: 56 Year
  Sex: Male
  Weight: 127.12 kg

DRUGS (3)
  1. HUMIRA [Suspect]
     Indication: COLITIS ULCERATIVE
     Route: 058
     Dates: start: 201204, end: 201204
  2. HUMIRA [Suspect]
     Indication: CROHN^S DISEASE
     Route: 058
     Dates: start: 201204, end: 201204
  3. HUMIRA [Suspect]
     Route: 058
     Dates: start: 201205

REACTIONS (4)
  - Defaecation urgency [Recovered/Resolved]
  - Hypertension [Recovering/Resolving]
  - Device malfunction [Unknown]
  - Drug dose omission [Unknown]
